FAERS Safety Report 21624624 (Version 3)
Quarter: 2022Q4

REPORT INFORMATION
  Report Type: Spontaneous
  Country: FR (occurrence: FR)
  Receive Date: 20221121
  Receipt Date: 20221230
  Transmission Date: 20230112
  Serious: Yes (Other)
  Sender: FDA-Public Use
  Company Number: FR-BAXTER-2022BAX024733

PATIENT
  Sex: Female

DRUGS (1)
  1. CYCLOPHOSPHAMIDE [Suspect]
     Active Substance: CYCLOPHOSPHAMIDE
     Indication: Product used for unknown indication
     Dosage: 2 TABLETS/DAY (EVERY MORNING)
     Route: 048
     Dates: start: 20220914, end: 20221018

REACTIONS (21)
  - Cardiovascular disorder [Not Recovered/Not Resolved]
  - Migraine [Not Recovered/Not Resolved]
  - Unevaluable event [Not Recovered/Not Resolved]
  - Bronchial obstruction [Unknown]
  - Nausea [Not Recovered/Not Resolved]
  - Vomiting [Not Recovered/Not Resolved]
  - Alopecia [Not Recovered/Not Resolved]
  - Product prescribing error [Unknown]
  - Urinary tract disorder [Not Recovered/Not Resolved]
  - Choking sensation [Unknown]
  - Toothache [Unknown]
  - Onychoclasis [Unknown]
  - Dysphagia [Unknown]
  - Disturbance in attention [Unknown]
  - Ear pain [Unknown]
  - Bronchitis [Unknown]
  - Aphthous ulcer [Unknown]
  - Oropharyngeal pain [Unknown]
  - Cough [Unknown]
  - Fatigue [Not Recovered/Not Resolved]
  - Tachycardia [Unknown]
